FAERS Safety Report 19969393 (Version 1)
Quarter: 2021Q4

REPORT INFORMATION
  Report Type: Spontaneous
  Country: FR (occurrence: FR)
  Receive Date: 20211019
  Receipt Date: 20211019
  Transmission Date: 20220303
  Serious: Yes (Other)
  Sender: FDA-Public Use
  Company Number: None

PATIENT
  Age: 47 Year
  Sex: Female
  Weight: 75 kg

DRUGS (27)
  1. CYTARABINE [Suspect]
     Active Substance: CYTARABINE
     Indication: Acute lymphocytic leukaemia
     Dosage: 40 MG, 1X/DAY
     Route: 037
     Dates: start: 20210729, end: 20210729
  2. CYTARABINE [Suspect]
     Active Substance: CYTARABINE
     Dosage: 40 MG, 1X/DAY
     Route: 037
     Dates: start: 20210731, end: 20210731
  3. CYTARABINE [Suspect]
     Active Substance: CYTARABINE
     Dosage: 40 MG, 1X/DAY
     Route: 037
     Dates: start: 20210802, end: 20210802
  4. CYTARABINE [Suspect]
     Active Substance: CYTARABINE
     Dosage: 40 MG, 1X/DAY
     Route: 037
     Dates: start: 20210804, end: 20210804
  5. CYTARABINE [Suspect]
     Active Substance: CYTARABINE
     Dosage: 40 MG, 1X/DAY
     Route: 037
     Dates: start: 20210806, end: 20210806
  6. CYTARABINE [Suspect]
     Active Substance: CYTARABINE
     Dosage: 40 MG, 1X/DAY
     Route: 037
     Dates: start: 20210810, end: 20210810
  7. CYTARABINE [Suspect]
     Active Substance: CYTARABINE
     Dosage: 40 MG, 1X/DAY
     Route: 037
     Dates: start: 20210817, end: 20210817
  8. CYTARABINE [Suspect]
     Active Substance: CYTARABINE
     Dosage: 40 MG, 1X/DAY
     Route: 037
     Dates: start: 20210820, end: 20210820
  9. CYTARABINE [Suspect]
     Active Substance: CYTARABINE
     Dosage: 40 MG, 1X/DAY
     Route: 037
     Dates: start: 20210824, end: 20210824
  10. CYTARABINE [Suspect]
     Active Substance: CYTARABINE
     Dosage: 40 MG, 1X/DAY
     Route: 037
     Dates: start: 20210827, end: 20210827
  11. ATRIANCE [Suspect]
     Active Substance: NELARABINE
     Indication: Acute lymphocytic leukaemia
     Dosage: 2790 MG, 1X/DAY
     Route: 041
     Dates: start: 20210811, end: 20210811
  12. ATRIANCE [Suspect]
     Active Substance: NELARABINE
     Dosage: 2790 MG, 1X/DAY
     Route: 041
     Dates: start: 20210813, end: 20210813
  13. ATRIANCE [Suspect]
     Active Substance: NELARABINE
     Dosage: 2790 MG, 1X/DAY
     Route: 041
     Dates: start: 20210816, end: 20210816
  14. METHOTREXATE [Suspect]
     Active Substance: METHOTREXATE
     Indication: Acute lymphocytic leukaemia
     Dosage: 15 MG, 1X/DAY
     Route: 037
     Dates: start: 20210729, end: 20210729
  15. METHOTREXATE [Suspect]
     Active Substance: METHOTREXATE
     Dosage: 15 MG, 1X/DAY
     Route: 037
     Dates: start: 20210731, end: 20210731
  16. METHOTREXATE [Suspect]
     Active Substance: METHOTREXATE
     Dosage: 15 MG, 1X/DAY
     Route: 037
     Dates: start: 20210802, end: 20210802
  17. METHOTREXATE [Suspect]
     Active Substance: METHOTREXATE
     Dosage: 15 MG, 1X/DAY
     Route: 037
     Dates: start: 20210804, end: 20210804
  18. METHOTREXATE [Suspect]
     Active Substance: METHOTREXATE
     Dosage: 15 MG, 1X/DAY
     Route: 037
     Dates: start: 20210806, end: 20210806
  19. METHOTREXATE [Suspect]
     Active Substance: METHOTREXATE
     Dosage: 15 MG, 1X/DAY
     Route: 037
     Dates: start: 20210810, end: 20210810
  20. METHOTREXATE [Suspect]
     Active Substance: METHOTREXATE
     Dosage: 15 MG, 1X/DAY
     Route: 037
     Dates: start: 20210817, end: 20210817
  21. METHOTREXATE [Suspect]
     Active Substance: METHOTREXATE
     Dosage: 15 MG, 1X/DAY
     Route: 037
     Dates: start: 20210820, end: 20210820
  22. METHOTREXATE [Suspect]
     Active Substance: METHOTREXATE
     Dosage: 15 MG, 1X/DAY
     Route: 037
     Dates: start: 20210824, end: 20210824
  23. METHOTREXATE [Suspect]
     Active Substance: METHOTREXATE
     Dosage: 15 MG, 1X/DAY
     Route: 037
     Dates: start: 20210827, end: 20210827
  24. CYCLOPHOSPHAMIDE [Suspect]
     Active Substance: CYCLOPHOSPHAMIDE
     Indication: Acute lymphocytic leukaemia
     Dosage: 820 MG, 1X/DAY
     Route: 041
     Dates: start: 20210806, end: 20210810
  25. CYCLOPHOSPHAMIDE [Suspect]
     Active Substance: CYCLOPHOSPHAMIDE
     Dosage: 780 MG, 1X/DAY
     Route: 041
     Dates: start: 20210916, end: 20210920
  26. ETOPOSIDE [Suspect]
     Active Substance: ETOPOSIDE
     Indication: Acute lymphocytic leukaemia
     Dosage: 188 MG, 1X/DAY
     Route: 041
     Dates: start: 20210806, end: 20210810
  27. ETOPOSIDE [Suspect]
     Active Substance: ETOPOSIDE
     Dosage: 192 MG, 1X/DAY
     Route: 041
     Dates: start: 20210916, end: 20210920

REACTIONS (1)
  - Subacute combined cord degeneration [Not Recovered/Not Resolved]

NARRATIVE: CASE EVENT DATE: 20210904
